FAERS Safety Report 24411232 (Version 1)
Quarter: 2024Q4

REPORT INFORMATION
  Report Type: Spontaneous
  Country: US (occurrence: US)
  Receive Date: 20241008
  Receipt Date: 20241008
  Transmission Date: 20250114
  Serious: No
  Sender: TORRENT
  Company Number: US-TORRENT-00013777

PATIENT
  Age: 61 Year
  Sex: Female

DRUGS (1)
  1. DICHLORPHENAMIDE [Suspect]
     Active Substance: DICHLORPHENAMIDE
     Indication: Product used for unknown indication
     Dosage: UNKNOWN
     Route: 065

REACTIONS (5)
  - Asthenia [Unknown]
  - Condition aggravated [Unknown]
  - Product taste abnormal [Unknown]
  - Product odour abnormal [Unknown]
  - Drug ineffective [Unknown]
